FAERS Safety Report 10725068 (Version 3)
Quarter: 2015Q2

REPORT INFORMATION
  Report Type: Spontaneous
  Country: US (occurrence: None)
  Receive Date: 20150116
  Receipt Date: 20150513
  Transmission Date: 20150821
  Serious: Yes (Disabling, Other)
  Sender: FDA-Public Use
  Company Number: 2015-10291

PATIENT
  Age: 77 Year
  Sex: Male

DRUGS (7)
  1. EYLEA [Suspect]
     Active Substance: AFLIBERCEPT
     Indication: NEOVASCULAR AGE-RELATED MACULAR DEGENERATION
     Dosage: 2 MG, IN OS AS NECESSARY, INTRAOCULAR
     Route: 031
     Dates: start: 20120222, end: 20140915
  2. ASPIRIN /00002701/ (ACETYLSALICYLIC ACID) [Concomitant]
  3. LIPITOR [Concomitant]
     Active Substance: ATORVASTATIN CALCIUM
  4. METOPROLOL [Concomitant]
     Active Substance: METOPROLOL
  5. LOTREL (AMLODIPINE BESILATE, BENAZEPRIL HYDROCHLORIDE) [Concomitant]
  6. TRICOR /00090101/ (ADENOSINE) [Concomitant]
  7. MEN^S MULTI (ASCORBIC ACID, BETACAROTENE, CALCIUM, CHROMIC CHLORIDE, COLECALCIFEROL, CYANOCOBALAMIN, DL-ALPHA TOCOPHERYL ACETATE, FERROUS FUMARATE, FOLIC ACID, MAGNESIUM OXIDE, MANGANESE, NICOTINIC ACID, PANAX GINSENG ROOT, PANTOTHENIC ACID, POTASSIUM IODIDE, POTASSIUM SULFATE, PYRIDOXINE, RIBOFLAVIN, SELENIUM, SILYBUM MARIANUM DRY FRUIT, THIAMINE, ZINC) [Concomitant]

REACTIONS (5)
  - Blindness transient [None]
  - Uveitis [None]
  - Dry age-related macular degeneration [None]
  - Vitritis [None]
  - Retinal haemorrhage [None]

NARRATIVE: CASE EVENT DATE: 20140916
